FAERS Safety Report 9025085 (Version 2)
Quarter: 2013Q1

REPORT INFORMATION
  Report Type: Spontaneous
  Country: US (occurrence: US)
  Receive Date: 20130121
  Receipt Date: 20130218
  Transmission Date: 20140127
  Serious: No
  Sender: FDA-Public Use
  Company Number: US-ROXANE LABORATORIES, INC.-2013-RO-00036RO

PATIENT
  Sex: Female

DRUGS (1)
  1. LOSARTAN POTASSIUM USP [Suspect]
     Indication: BLOOD PRESSURE
     Dates: start: 20121219

REACTIONS (2)
  - Blood pressure inadequately controlled [Recovered/Resolved]
  - Product quality issue [Unknown]
